FAERS Safety Report 5389399-X (Version None)
Quarter: 2007Q3

REPORT INFORMATION
  Report Type: 
  Country: None (occurrence: None)
  Receive Date: 20070703
  Receipt Date: 20070317
  Transmission Date: 20080115
  Serious: No
  Sender: FDA-Public Use
  Company Number: 2007PV031939

PATIENT
  Age: 70 Year
  Sex: Male
  Weight: 120.2032 kg

DRUGS (5)
  1. SYMLIN [Suspect]
     Indication: DIABETES MELLITUS
     Dosage: 72 MCG;BID;SC
     Route: 058
     Dates: start: 20070306
  2. GLUCOTROL [Concomitant]
  3. GLUCOPHAGE [Concomitant]
  4. INSULIN [Concomitant]
  5. BYETTA [Concomitant]

REACTIONS (3)
  - BLOOD GLUCOSE INCREASED [None]
  - HYPOGLYCAEMIA [None]
  - INJECTION SITE PAIN [None]
